FAERS Safety Report 6338079-2 (Version None)
Quarter: 2009Q3

REPORT INFORMATION
  Report Type: 
  Country: None (occurrence: None)
  Receive Date: 20090902
  Receipt Date: 20090824
  Transmission Date: 20100115
  Serious: Yes (Other)
  Sender: FDA-Public Use
  Company Number: PHHY2009MX03130

PATIENT
  Sex: Female

DRUGS (2)
  1. ACLASTA [Suspect]
     Indication: OSTEOPOROSIS
     Dosage: ONE INFUSION 5 MG/100 ML PER YEAR
     Route: 042
     Dates: start: 20090101, end: 20090101
  2. NAPROXEN [Concomitant]

REACTIONS (4)
  - BACK PAIN [None]
  - HIATUS HERNIA [None]
  - OEDEMA PERIPHERAL [None]
  - PYREXIA [None]
